FAERS Safety Report 9278503 (Version 2)
Quarter: 2013Q2

REPORT INFORMATION
  Report Type: Report from Study
  Country: US (occurrence: US)
  Receive Date: 20130508
  Receipt Date: 20130524
  Transmission Date: 20140414
  Serious: Yes (Other)
  Sender: FDA-Public Use
  Company Number: US-JNJFOC-20130501021

PATIENT
  Age: 61 Year
  Sex: Male
  Weight: 77.11 kg

DRUGS (6)
  1. NUCYNTA [Suspect]
     Indication: PAIN
     Dosage: 4 TO 6 TIMES A DAY AS NEEDED
     Route: 048
     Dates: start: 20130501
  2. SOMA [Concomitant]
     Indication: MUSCLE SPASMS
     Dosage: THREE TIMES DAILY AS NEEDED
     Route: 048
     Dates: start: 201207
  3. TOPROL XL [Concomitant]
     Indication: HYPERTENSION
     Dosage: ONCE DAILY
     Route: 048
  4. MORPHINE SULFATE [Concomitant]
     Indication: BREAKTHROUGH PAIN
     Route: 048
  5. OXYCODONE [Concomitant]
     Indication: BREAKTHROUGH PAIN
     Dosage: AS NEEDED
     Route: 048
  6. BABY ASPRIN [Concomitant]
     Route: 065

REACTIONS (2)
  - Feeling abnormal [Recovered/Resolved]
  - Dizziness [Recovered/Resolved]
